FAERS Safety Report 6593482-0 (Version None)
Quarter: 2010Q1

REPORT INFORMATION
  Report Type: 
  Country: None (occurrence: None)
  Receive Date: 20100222
  Receipt Date: 20090528
  Transmission Date: 20100710
  Serious: No
  Sender: FDA-Public Use
  Company Number: US-BRISTOL-MYERS SQUIBB COMPANY-14640528

PATIENT
  Age: 86 Year
  Sex: Female
  Weight: 50 kg

DRUGS (3)
  1. ORENCIA [Suspect]
     Dosage: SIX INFUSION RECEIVED
  2. LISINOPRIL [Concomitant]
  3. BISOPROLOL [Concomitant]

REACTIONS (2)
  - FATIGUE [None]
  - MALAISE [None]
